FAERS Safety Report 25228423 (Version 2)
Quarter: 2025Q2

REPORT INFORMATION
  Report Type: Report from Study
  Country: US (occurrence: US)
  Receive Date: 20250423
  Receipt Date: 20250511
  Transmission Date: 20250717
  Serious: No
  Sender: MERCK SHARP & DOHME LLC
  Company Number: US-009507513-2277620

PATIENT
  Sex: Female

DRUGS (24)
  1. WINREVAIR [Suspect]
     Active Substance: SOTATERCEPT-CSRK
     Dosage: UNKNOWN/ONCE EVERY 3 WEEKS
  2. WINREVAIR [Suspect]
     Active Substance: SOTATERCEPT-CSRK
  3. WINREVAIR [Suspect]
     Active Substance: SOTATERCEPT-CSRK
  4. WINREVAIR [Suspect]
     Active Substance: SOTATERCEPT-CSRK
  5. WINREVAIR [Suspect]
     Active Substance: SOTATERCEPT-CSRK
     Dosage: UNKNOWN/ONCE EVERY 3 WEEKS
  6. WINREVAIR [Suspect]
     Active Substance: SOTATERCEPT-CSRK
  7. WINREVAIR [Suspect]
     Active Substance: SOTATERCEPT-CSRK
  8. WINREVAIR [Suspect]
     Active Substance: SOTATERCEPT-CSRK
  9. WINREVAIR [Suspect]
     Active Substance: SOTATERCEPT-CSRK
  10. WINREVAIR [Suspect]
     Active Substance: SOTATERCEPT-CSRK
  11. WINREVAIR [Suspect]
     Active Substance: SOTATERCEPT-CSRK
  12. WINREVAIR [Suspect]
     Active Substance: SOTATERCEPT-CSRK
  13. UPTRAVI [Concomitant]
     Active Substance: SELEXIPAG
  14. LEVOTHYROXINE SODIUM [Concomitant]
     Active Substance: LEVOTHYROXINE SODIUM
  15. VITAMIN B12 [Concomitant]
     Active Substance: CYANOCOBALAMIN
  16. BUMETANIDE [Concomitant]
     Active Substance: BUMETANIDE
  17. VITAMIN D2 [Concomitant]
     Active Substance: ERGOCALCIFEROL
  18. POTASSIUM CHLORIDE [Concomitant]
     Active Substance: POTASSIUM CHLORIDE
  19. OPSUMIT [Concomitant]
     Active Substance: MACITENTAN
  20. FLUARIX QUAD [Concomitant]
  21. VITAMIN C [Concomitant]
     Active Substance: ASCORBIC ACID
  22. SPIRONOLACTONE [Concomitant]
     Active Substance: SPIRONOLACTONE
  23. ACETAMINOPHEN [Concomitant]
     Active Substance: ACETAMINOPHEN
  24. CARVEDILOL [Concomitant]
     Active Substance: CARVEDILOL

REACTIONS (4)
  - Product dose omission issue [Unknown]
  - Product physical consistency issue [Unknown]
  - Product storage error [Unknown]
  - No adverse event [Unknown]
